FAERS Safety Report 5554478-0 (Version None)
Quarter: 2007Q4

REPORT INFORMATION
  Report Type: 
  Country: None (occurrence: None)
  Receive Date: 20071213
  Receipt Date: 20071129
  Transmission Date: 20080405
  Serious: Yes (Other)
  Sender: FDA-Public Use
  Company Number: US-ELI_LILLY_AND_COMPANY-US200710000511

PATIENT
  Age: 76 Year
  Sex: Female
  Weight: 64.852 kg

DRUGS (3)
  1. EVISTA [Suspect]
     Indication: OSTEOPOROSIS
     Dosage: 60 MG, UNK
     Route: 048
     Dates: start: 20030101, end: 20070801
  2. AVAPRO [Concomitant]
     Indication: BLOOD PRESSURE
  3. ESTROGEN NOS [Concomitant]

REACTIONS (1)
  - BREAST CANCER [None]
